FAERS Safety Report 20076350 (Version 1)
Quarter: 2021Q4

REPORT INFORMATION
  Report Type: Report from Study
  Country: US (occurrence: None)
  Receive Date: 20211116
  Receipt Date: 20211116
  Transmission Date: 20220304
  Serious: Yes (Other)
  Sender: FDA-Public Use
  Company Number: 2021A746948

PATIENT
  Sex: Male
  Weight: 84 kg

DRUGS (2)
  1. CALQUENCE [Suspect]
     Active Substance: ACALABRUTINIB
     Indication: Chronic lymphocytic leukaemia
     Route: 048
     Dates: start: 20200619, end: 20210910
  2. ASPIRIN [Concomitant]
     Active Substance: ASPIRIN

REACTIONS (1)
  - Leukocytosis [Not Recovered/Not Resolved]
